FAERS Safety Report 18138434 (Version 3)
Quarter: 2022Q1

REPORT INFORMATION
  Report Type: Report from Study
  Country: US (occurrence: None)
  Receive Date: 20200812
  Receipt Date: 20220125
  Transmission Date: 20220423
  Serious: Yes (Hospitalization, Other)
  Sender: FDA-Public Use
  Company Number: US-ROCHE-2653876

PATIENT
  Age: 56 Year
  Sex: Female
  Weight: 71.8 kg

DRUGS (1)
  1. ATEZOLIZUMAB [Suspect]
     Active Substance: ATEZOLIZUMAB
     Indication: Small cell lung cancer
     Dosage: MOST RECENT DOSE RECEIVED ON: 13/FEB/2020
     Route: 041
     Dates: start: 20200122

REACTIONS (4)
  - Embolism arterial [Recovered/Resolved]
  - Dyspnoea [Recovered/Resolved]
  - Platelet count decreased [Recovered/Resolved]
  - Embolism [Recovered/Resolved]

NARRATIVE: CASE EVENT DATE: 20200222
